FAERS Safety Report 9015645 (Version 1)
Quarter: 2013Q1

REPORT INFORMATION
  Report Type: Spontaneous
  Country: KR (occurrence: None)
  Receive Date: 20130102
  Receipt Date: 20130102
  Transmission Date: 20140127
  Serious: Yes (Hospitalization, Other)
  Sender: FDA-Public Use
  Company Number: 2012P1067885

PATIENT
  Age: 63 Year
  Sex: Female

DRUGS (2)
  1. HYDROXYCHLOROQUINE [Suspect]
     Indication: RHEUMATOID ARTHRITIS
  2. PREDNISOLONE [Concomitant]

REACTIONS (8)
  - Pulmonary arterial hypertension [None]
  - Dyspnoea [None]
  - Weight increased [None]
  - Atrioventricular block complete [None]
  - Diastolic dysfunction [None]
  - Tricuspid valve incompetence [None]
  - Mitral valve incompetence [None]
  - Cardiomegaly [None]
